FAERS Safety Report 10580951 (Version 3)
Quarter: 2014Q4

REPORT INFORMATION
  Report Type: Spontaneous
  Country: AU (occurrence: None)
  Receive Date: 20141110
  Receipt Date: 20141217
  Transmission Date: 20150529
  Serious: Yes (Other)
  Sender: FDA-Public Use
  Company Number: ADR-2014-02064

PATIENT
  Sex: Female

DRUGS (1)
  1. LIORESAL [Suspect]
     Active Substance: BACLOFEN
     Indication: PRODUCT USED FOR UNKNOWN INDICATION

REACTIONS (8)
  - Catheter site swelling [None]
  - Wound complication [None]
  - Catheter site extravasation [None]
  - Therapy change [None]
  - Device breakage [None]
  - Muscle spasticity [None]
  - Hypotonia [None]
  - Implant site extravasation [None]
